FAERS Safety Report 12447292 (Version 1)
Quarter: 2016Q2

REPORT INFORMATION
  Report Type: Spontaneous
  Country: FR (occurrence: FR)
  Receive Date: 20160608
  Receipt Date: 20160608
  Transmission Date: 20160815
  Serious: Yes (Other)
  Sender: FDA-Public Use
  Company Number: FR-GALDERMA-FR16002871

PATIENT
  Age: 52 Year
  Sex: Male

DRUGS (2)
  1. CORTICOIDS [Concomitant]
     Active Substance: UNSPECIFIED INGREDIENT
     Indication: PSORIASIS
     Route: 061
  2. MIRVASO [Suspect]
     Active Substance: BRIMONIDINE TARTRATE
     Indication: ERYTHROSIS
     Dosage: 3 MG/G
     Route: 061
     Dates: start: 20160424

REACTIONS (6)
  - Rosacea [Unknown]
  - Activities of daily living impaired [Unknown]
  - Rebound effect [Unknown]
  - Skin burning sensation [Unknown]
  - Dependence [Unknown]
  - Erythema [Unknown]
